FAERS Safety Report 8131411-9 (Version None)
Quarter: 2012Q1

REPORT INFORMATION
  Report Type: 
  Country: None (occurrence: None)
  Receive Date: 20120213
  Receipt Date: 20120203
  Transmission Date: 20120608
  Serious: Yes (Other)
  Sender: FDA-Public Use
  Company Number: US-BAYER-2011-042264

PATIENT
  Age: 49 Year
  Sex: Female
  Weight: 75 kg

DRUGS (9)
  1. HYDROCODONE [Concomitant]
     Indication: PAIN
     Dosage: UNK
     Dates: start: 20060301, end: 20080101
  2. ACETAMINOPHEN [Concomitant]
     Dosage: UNK
     Dates: start: 20061001
  3. PROZAC [Concomitant]
     Indication: ANXIETY
     Dosage: UNK
     Dates: start: 20060101
  4. OXYCODONE AND ACETAMINOPHEN [Concomitant]
     Indication: PAIN
     Dosage: UNK
     Dates: start: 20061025, end: 20061028
  5. WELLBUTRIN SR [Concomitant]
     Indication: ANXIETY
  6. BUPROPION HCL [Concomitant]
     Indication: ANXIETY
     Dosage: UNK
     Dates: start: 20041201, end: 20080101
  7. LORTAB [Concomitant]
     Indication: PAIN
     Dosage: UNK
     Dates: start: 20060301, end: 20080101
  8. YASMIN [Suspect]
     Indication: CONTRACEPTION
     Dosage: UNK
     Dates: start: 20020701, end: 20061010
  9. ACETAMINOPHEN AND OXYCODONE HCL [Concomitant]
     Indication: PAIN
     Dosage: UNK
     Dates: start: 20061025, end: 20061028

REACTIONS (7)
  - ANXIETY [None]
  - GENERAL PHYSICAL HEALTH DETERIORATION [None]
  - THROMBOPHLEBITIS SUPERFICIAL [None]
  - INJURY [None]
  - EMOTIONAL DISTRESS [None]
  - DEEP VEIN THROMBOSIS [None]
  - PAIN [None]
